FAERS Safety Report 16341674 (Version 1)
Quarter: 2019Q2

REPORT INFORMATION
  Report Type: Spontaneous
  Country: US (occurrence: US)
  Receive Date: 20190416
  Receipt Date: 20190416
  Transmission Date: 20190711
  Serious: No
  Sender: FDA-Public Use
  Company Number: None

PATIENT
  Age: 62 Year
  Sex: Female
  Weight: 99.79 kg

DRUGS (3)
  1. REPATHA [Suspect]
     Active Substance: EVOLOCUMAB
     Indication: TYPE IIA HYPERLIPIDAEMIA
     Dosage: AS DIRECTED
     Route: 058
     Dates: start: 201902
  2. REPATHA [Suspect]
     Active Substance: EVOLOCUMAB
     Indication: CEREBRAL INFARCTION
     Dosage: AS DIRECTED
     Route: 058
     Dates: start: 201902
  3. REPATHA [Suspect]
     Active Substance: EVOLOCUMAB
     Indication: CAROTID ARTERY STENOSIS
     Dosage: AS DIRECTED
     Route: 058
     Dates: start: 201902

REACTIONS (2)
  - Transient ischaemic attack [None]
  - Urinary tract infection [None]
